FAERS Safety Report 7458113-6 (Version None)
Quarter: 2011Q2

REPORT INFORMATION
  Report Type: 
  Country: None (occurrence: None)
  Receive Date: 20110504
  Receipt Date: 20110429
  Transmission Date: 20111010
  Serious: Yes (Other)
  Sender: FDA-Public Use
  Company Number: A0925166A

PATIENT
  Age: 54 Year
  Sex: Female

DRUGS (3)
  1. VITAMIN C [Concomitant]
  2. ALLI [Suspect]
     Indication: WEIGHT LOSS DIET
     Route: 048
  3. METAMUCIL-2 [Concomitant]

REACTIONS (2)
  - DIABETES MELLITUS [None]
  - BLOOD GLUCOSE DECREASED [None]
